FAERS Safety Report 22296638 (Version 3)
Quarter: 2023Q2

REPORT INFORMATION
  Report Type: Report from Study
  Country: US (occurrence: US)
  Receive Date: 20230508
  Receipt Date: 20230614
  Transmission Date: 20230722
  Serious: Yes (Hospitalization, Other)
  Sender: FDA-Public Use
  Company Number: US-ABBVIE-4753276

PATIENT
  Sex: Male

DRUGS (2)
  1. IMBRUVICA [Suspect]
     Active Substance: IBRUTINIB
     Indication: Non-Hodgkin^s lymphoma
     Route: 048
     Dates: start: 20220201
  2. IMBRUVICA [Suspect]
     Active Substance: IBRUTINIB
     Indication: Non-Hodgkin^s lymphoma
     Route: 048
     Dates: start: 20230119, end: 20230413

REACTIONS (10)
  - Pneumonia [Recovering/Resolving]
  - Atrial fibrillation [Unknown]
  - Spinal fracture [Unknown]
  - Platelet count decreased [Unknown]
  - Loss of consciousness [Unknown]
  - Increased tendency to bruise [Unknown]
  - Fall [Recovering/Resolving]
  - Toxicity to various agents [Recovering/Resolving]
  - Haemorrhage [Unknown]
  - Malaise [Unknown]

NARRATIVE: CASE EVENT DATE: 20230101
